FAERS Safety Report 8488821-X (Version None)
Quarter: 2012Q2

REPORT INFORMATION
  Report Type: 
  Country: None (occurrence: None)
  Receive Date: 20120626
  Receipt Date: 20120620
  Transmission Date: 20120825
  Serious: Yes (Death)
  Sender: FDA-Public Use
  Company Number: US-2012-10768

PATIENT

DRUGS (5)
  1. BUSULFAN [Suspect]
     Indication: BONE MARROW CONDITIONING REGIMEN
     Dosage: 12 MG/KG
  2. CYCLOPHOSPHAMIDE [Suspect]
     Indication: BONE MARROW CONDITIONING REGIMEN
     Dosage: 120 MG/KG
  3. PREDNISONE TAB [Concomitant]
  4. FLUDARABINE PHOSPHATE [Suspect]
     Indication: BONE MARROW CONDITIONING REGIMEN
     Dosage: 200 MG/KG
  5. ANTI-THYMOCYTE GLOBULIN NOS [Suspect]
     Indication: BONE MARROW CONDITIONING REGIMEN
     Dosage: 25 MG/G

REACTIONS (9)
  - GRAFT VERSUS HOST DISEASE IN LIVER [None]
  - INTERNATIONAL NORMALISED RATIO INCREASED [None]
  - THERAPEUTIC RESPONSE DECREASED [None]
  - RESPIRATORY DISORDER [None]
  - GRAFT VERSUS HOST DISEASE IN SKIN [None]
  - INFECTION [None]
  - HEPATIC FAILURE [None]
  - KAPOSI'S SARCOMA [None]
  - HEPATIC NEOPLASM [None]
